FAERS Safety Report 13999049 (Version 1)
Quarter: 2017Q3

REPORT INFORMATION
  Report Type: Spontaneous
  Country: FR (occurrence: FR)
  Receive Date: 20170922
  Receipt Date: 20170922
  Transmission Date: 20171128
  Serious: Yes (Hospitalization, Other)
  Sender: FDA-Public Use
  Company Number: FR-GLAXOSMITHKLINE-FR2017GSK145806

PATIENT
  Age: 78 Year
  Sex: Female

DRUGS (12)
  1. VENTOLINE [Suspect]
     Active Substance: ALBUTEROL
     Indication: ASTHMA
     Dosage: 1 PUFF(S), Z
     Route: 055
     Dates: start: 201708
  2. TRIFLUCAN [Suspect]
     Active Substance: FLUCONAZOLE
     Indication: FUNGAL INFECTION
     Dosage: UNK
     Dates: start: 201708
  3. BOTOX [Suspect]
     Active Substance: ONABOTULINUMTOXINA
     Indication: ANAL INCONTINENCE
     Dosage: 500 UNK, Z
     Route: 030
     Dates: start: 201201
  4. OXALIPLATINE [Suspect]
     Active Substance: OXALIPLATIN
     Indication: RECTAL CANCER
     Dosage: 50 MG, CYC
     Route: 042
     Dates: start: 2006, end: 2006
  5. DILATRANE (THEOPHYLLINE) [Suspect]
     Active Substance: THEOPHYLLINE
     Indication: CHRONIC OBSTRUCTIVE PULMONARY DISEASE
     Dosage: 2 DF, 1D, 300MG
     Route: 048
     Dates: start: 2015
  6. ULTIBRO BREEZHALER [Suspect]
     Active Substance: GLYCOPYRRONIUM\INDACATEROL
     Indication: CHRONIC OBSTRUCTIVE PULMONARY DISEASE
     Dosage: 1 DF, 1D, 85 MCG/43 MCG
     Route: 055
     Dates: start: 201708
  7. BURINEX [Suspect]
     Active Substance: BUMETANIDE
     Indication: HYPERTENSION
     Dosage: 5 MG, 1D
     Route: 048
     Dates: start: 201708
  8. CORTANCYL [Suspect]
     Active Substance: PREDNISONE
     Indication: CHRONIC OBSTRUCTIVE PULMONARY DISEASE
     Dosage: 12 MG, QD
     Route: 048
     Dates: start: 201708
  9. SINGULAIR [Suspect]
     Active Substance: MONTELUKAST SODIUM
     Indication: ASTHMA
     Dosage: 10 MG, 1D
     Route: 048
     Dates: start: 2015
  10. DIFFU K [Suspect]
     Active Substance: POTASSIUM CHLORIDE
     Indication: HYPOKALAEMIA
     Dosage: 2 DF, 1D
     Route: 048
     Dates: start: 201708
  11. XELODA [Suspect]
     Active Substance: CAPECITABINE
     Indication: RECTAL CANCER
     Dosage: 825 MG/M2, CYC
     Route: 048
     Dates: start: 2006, end: 2016
  12. PULMICORT TURBUHALER [Suspect]
     Active Substance: BUDESONIDE
     Indication: CHRONIC OBSTRUCTIVE PULMONARY DISEASE
     Dosage: 200 UG, BID
     Route: 055
     Dates: start: 2015

REACTIONS (1)
  - Congestive cardiomyopathy [Not Recovered/Not Resolved]

NARRATIVE: CASE EVENT DATE: 201708
